FAERS Safety Report 13558975 (Version 4)
Quarter: 2017Q3

REPORT INFORMATION
  Report Type: Other
  Country: US (occurrence: US)
  Receive Date: 20170518
  Receipt Date: 20170924
  Transmission Date: 20171127
  Serious: No
  Sender: FDA-Public Use
  Company Number: US-APOTEX-2017AP010595

PATIENT
  Age: 36 Year
  Sex: Female

DRUGS (2)
  1. CLARISPRAY NASAL ALLERGY [Suspect]
     Active Substance: FLUTICASONE PROPIONATE
     Indication: VIRAL UPPER RESPIRATORY TRACT INFECTION
  2. CLARISPRAY NASAL ALLERGY [Suspect]
     Active Substance: FLUTICASONE PROPIONATE
     Indication: HYPERSENSITIVITY
     Dosage: UNK
     Route: 045

REACTIONS (7)
  - Dry mouth [Recovered/Resolved]
  - Dry throat [Recovered/Resolved]
  - Dyspnoea [Recovered/Resolved]
  - Suffocation feeling [Recovered/Resolved]
  - Feeling abnormal [Recovered/Resolved]
  - Insomnia [Recovered/Resolved]
  - Nasal dryness [Recovered/Resolved]
